FAERS Safety Report 9989870 (Version 1)
Quarter: 2014Q1

REPORT INFORMATION
  Report Type: Report from Study
  Country: US (occurrence: US)
  Receive Date: 20140310
  Receipt Date: 20140310
  Transmission Date: 20141002
  Serious: No
  Sender: FDA-Public Use
  Company Number: US-ABBVIE-13P-163-1136841-00

PATIENT
  Age: 62 Year
  Sex: Female

DRUGS (8)
  1. HUMIRA [Suspect]
     Indication: CROHN^S DISEASE
     Dates: start: 20130515
  2. PHENERGAN [Concomitant]
     Indication: NAUSEA
  3. TRAMADOL [Concomitant]
     Indication: PAIN
  4. ZANTAC [Concomitant]
     Indication: GASTRIC DISORDER
  5. ZOLOFT [Concomitant]
     Indication: DEPRESSION
  6. ACIPHEX [Concomitant]
     Indication: GASTRIC DISORDER
  7. ELMIRON [Concomitant]
     Indication: CYSTITIS INTERSTITIAL
  8. SYNTHROID [Concomitant]
     Indication: PRODUCT USED FOR UNKNOWN INDICATION

REACTIONS (4)
  - Muscle disorder [Not Recovered/Not Resolved]
  - Diarrhoea [Not Recovered/Not Resolved]
  - Abdominal pain upper [Not Recovered/Not Resolved]
  - Pain [Not Recovered/Not Resolved]
